FAERS Safety Report 4618803-7 (Version None)
Quarter: 2005Q1

REPORT INFORMATION
  Report Type: 
  Country: None (occurrence: None)
  Receive Date: 20050323
  Receipt Date: 20050307
  Transmission Date: 20050727
  Serious: Yes (Hospitalization)
  Sender: FDA-Public Use
  Company Number: 2005000506

PATIENT
  Age: 43 Year
  Sex: Male

DRUGS (6)
  1. TARCEVA [Suspect]
     Indication: NON-SMALL CELL LUNG CANCER
     Dosage: 150 MG QD, ORAL; 100 MG QD, ORAL
     Route: 048
     Dates: start: 20050225, end: 20050303
  2. TARCEVA [Suspect]
     Indication: NON-SMALL CELL LUNG CANCER
     Dosage: 150 MG QD, ORAL; 100 MG QD, ORAL
     Route: 048
     Dates: start: 20041229
  3. WARFARIN SODIUM [Concomitant]
  4. MORPHINE [Concomitant]
  5. PROTONIX [Concomitant]
  6. PREDNISONE [Concomitant]

REACTIONS (4)
  - NAUSEA [None]
  - PANCREATITIS [None]
  - RASH [None]
  - VOMITING [None]
